FAERS Safety Report 5032254-5 (Version None)
Quarter: 2006Q2

REPORT INFORMATION
  Report Type: 
  Country: None (occurrence: None)
  Receive Date: 20060619
  Receipt Date: 20060605
  Transmission Date: 20061013
  Serious: Yes (Other)
  Sender: FDA-Public Use
  Company Number: US200604000801

PATIENT
  Age: 86 Year
  Sex: Female
  Weight: 56.7 kg

DRUGS (12)
  1. FORTEO [Suspect]
     Indication: OSTEOPOROSIS
     Dosage: 20 UG/DAY, DAILY (1/D)
     Dates: start: 20050927, end: 20060221
  2. FORTEO PEN                                         (FORTEO PEN) [Concomitant]
  3. SYNTHROID [Concomitant]
  4. PROTONIX [Concomitant]
  5. CALCIUM CITRATE W/COLECALCIFEROL (CALCIUM CITRATE, COLECALCIFEROL) [Concomitant]
  6. AMARYL [Concomitant]
  7. GLUCOSAMINE               (GLUCOSAMINE) [Concomitant]
  8. ALTACE [Concomitant]
  9. DETROL [Concomitant]
  10. COREG [Concomitant]
  11. LIPITOR [Concomitant]
  12. METFORMIN [Concomitant]

REACTIONS (5)
  - BLOOD ALBUMIN DECREASED [None]
  - BLOOD CREATININE ABNORMAL [None]
  - BLOOD UREA INCREASED [None]
  - GAIT DISTURBANCE [None]
  - HYPERCALCAEMIA [None]
